FAERS Safety Report 6270746-1 (Version None)
Quarter: 2009Q3

REPORT INFORMATION
  Report Type: 
  Country: None (occurrence: None)
  Receive Date: 20090716
  Receipt Date: 20090706
  Transmission Date: 20100115
  Serious: Yes (Other)
  Sender: FDA-Public Use
  Company Number: JP-PFIZER INC-2009236585

PATIENT
  Age: 28 Year

DRUGS (1)
  1. PREDNISOLONE STEAGLATE AND PREDNISOLONE [Suspect]
     Indication: HEARING IMPAIRED
     Dosage: 40 MG, SINGLE
     Route: 042

REACTIONS (1)
  - PURPURA [None]
